FAERS Safety Report 17402319 (Version 1)
Quarter: 2020Q1

REPORT INFORMATION
  Report Type: Spontaneous
  Country: US (occurrence: US)
  Receive Date: 20200211
  Receipt Date: 20200211
  Transmission Date: 20200409
  Serious: Yes (Other)
  Sender: FDA-Public Use
  Company Number: US-SA-2020SA033456

PATIENT
  Age: 29 Year
  Sex: Female

DRUGS (3)
  1. OXALIPLATINE WINTHROP [Suspect]
     Active Substance: OXALIPLATIN
     Indication: COLON CANCER
     Dosage: UNK
     Route: 065
  2. CAPECITABINE. [Suspect]
     Active Substance: CAPECITABINE
     Dosage: 10%
     Route: 065
  3. CAPECITABINE. [Suspect]
     Active Substance: CAPECITABINE
     Indication: COLON CANCER
     Dosage: 130 MG/M2
     Route: 048

REACTIONS (4)
  - Neutropenia [Unknown]
  - Muscle spasms [Unknown]
  - Thrombocytopenia [Unknown]
  - Blood phosphorus decreased [Unknown]
